FAERS Safety Report 19776832 (Version 1)
Quarter: 2021Q3

REPORT INFORMATION
  Report Type: Spontaneous
  Country: US (occurrence: US)
  Receive Date: 20210902
  Receipt Date: 20210902
  Transmission Date: 20211014
  Serious: No
  Sender: FDA-Public Use
  Company Number: US-SA-2021SA285222

PATIENT
  Age: 69 Year
  Sex: Female

DRUGS (3)
  1. DUPIXENT [Suspect]
     Active Substance: DUPILUMAB
     Indication: OSTEOPOROSIS
  2. TYMLOS [Concomitant]
     Active Substance: ABALOPARATIDE
     Dosage: UNK
     Dates: start: 202107
  3. DUPIXENT [Suspect]
     Active Substance: DUPILUMAB
     Indication: ASTHMA
     Dosage: 300 MG, QOW
     Route: 058
     Dates: start: 20210729

REACTIONS (5)
  - Myalgia [Unknown]
  - Sleep disorder [Unknown]
  - Product use issue [Unknown]
  - Muscle spasms [Unknown]
  - Product use in unapproved indication [Unknown]

NARRATIVE: CASE EVENT DATE: 20210729
